FAERS Safety Report 5109250-2 (Version None)
Quarter: 2006Q3

REPORT INFORMATION
  Report Type: 
  Country: None (occurrence: None)
  Receive Date: 20060918
  Receipt Date: 20060630
  Transmission Date: 20061208
  Serious: Yes (Other)
  Sender: FDA-Public Use
  Company Number: 2006-06-0369

PATIENT
  Age: 42 Year
  Sex: Female
  Weight: 64.4108 kg

DRUGS (8)
  1. PEG-INTRON [Suspect]
     Indication: HEPATITIS C
     Dosage: 120 MCG QWK SUBCUTANEOUS
     Route: 058
     Dates: start: 20060130
  2. REBETOL [Suspect]
     Indication: HEPATITIS C
     Dosage: 1000 MG QWK ORAL
     Dates: start: 20060130
  3. MIDRIN [Suspect]
     Indication: MIGRAINE
  4. CELEXA [Concomitant]
  5. NEXIUM [Concomitant]
  6. OXYCODONE HCL [Concomitant]
  7. PHENERGAN [Concomitant]
  8. ALBUTEROL [Concomitant]

REACTIONS (12)
  - ABDOMINAL PAIN UPPER [None]
  - DECREASED APPETITE [None]
  - DEHYDRATION [None]
  - DEPRESSION [None]
  - DIARRHOEA [None]
  - HAEMATOCRIT DECREASED [None]
  - HAEMOGLOBIN DECREASED [None]
  - LIP DRY [None]
  - MIGRAINE [None]
  - PNEUMONIA [None]
  - SYNCOPE [None]
  - VOMITING [None]
